FAERS Safety Report 24226332 (Version 1)
Quarter: 2024Q3

REPORT INFORMATION
  Report Type: Spontaneous
  Country: DE (occurrence: DE)
  Receive Date: 20240820
  Receipt Date: 20240820
  Transmission Date: 20241017
  Serious: Yes (Life-Threatening)
  Sender: SANDOZ
  Company Number: DE-CELLTRION HEALTHCARE HUNGARY KFT-2020DE030874

PATIENT

DRUGS (15)
  1. ACYCLOVIR [Suspect]
     Active Substance: ACYCLOVIR
     Indication: Product used for unknown indication
     Dosage: UNK, AT EACH CYCLE
     Route: 065
  2. CYTARABINE [Suspect]
     Active Substance: CYTARABINE
     Indication: Central nervous system lymphoma
     Dosage: 10 MG INTRAVENTRICULAR (CYCLE 4+6; 1 CYCLE = 3 WEEKS; DAY 6)
  3. CYTARABINE [Suspect]
     Active Substance: CYTARABINE
     Dosage: 10 MG INTRAVENTRICULAR (CYCLE 5; 1 CYCLE = 2 WEEKS; DAY 5)
  4. CYTARABINE [Suspect]
     Active Substance: CYTARABINE
     Dosage: 3000 MG/M2 (CYCLE 4+6; 1 CYCLE = 3 WEEKS; DAYS 1-2)
     Route: 042
  5. GRANULOCYTE COLONY-STIMULATING FACTOR NOS [Suspect]
     Active Substance: GRANULOCYTE COLONY-STIMULATING FACTOR NOS
     Indication: Prophylaxis
     Dosage: UNK, AT EACH CYCLE
     Route: 065
  6. IFOSFAMIDE [Suspect]
     Active Substance: IFOSFAMIDE
     Indication: Central nervous system lymphoma
     Dosage: 800 MG/M2 (CYCLE 1-3; 1 CYCLE = 2 WEEKS; DAYS 2-4)
     Route: 042
  7. IFOSFAMIDE [Suspect]
     Active Substance: IFOSFAMIDE
     Dosage: 800 MG/M2 (CYCLE 5; 1 CYCLE = 2 WEEKS; DAYS 2-4)
     Route: 042
  8. METHOTREXATE [Suspect]
     Active Substance: METHOTREXATE
     Dosage: 2.5 MG (CYCLE 4+6; 1 CYCLE = 3 WEEKS; DAYS 3-5) WITH PREDNISOLONE
     Route: 065
  9. METHOTREXATE [Suspect]
     Active Substance: METHOTREXATE
     Dosage: 2.5 MG (CYCLE 5; 1 CYCLE = 2 WEEKS; DAYS 2-4) WITH PREDNISOLONE
     Route: 065
  10. METHOTREXATE [Suspect]
     Active Substance: METHOTREXATE
     Dosage: 4000 MG/M2  (CYCLE 5; 1 CYCLE = 2 WEEKS; DAY 1)
     Route: 042
  11. METHOTREXATE [Suspect]
     Active Substance: METHOTREXATE
     Indication: Central nervous system lymphoma
     Dosage: 4000 MG/M2 (CYCLE 1-3; 1 CYCLE = 2 WEEKS; DAY 1)
     Route: 042
  12. PREDNISOLONE [Suspect]
     Active Substance: PREDNISOLONE
     Dosage: 3 MG ICV (CYCLE 4+6; 1 CYCLE = 3 WEEKS; DAYS 3-5) WITH MTX
     Route: 065
  13. PREDNISOLONE [Suspect]
     Active Substance: PREDNISOLONE
     Indication: Central nervous system lymphoma
     Dosage: 3 MG ICV (CYCLE 5; 1 CYCLE = 2 WEEKS; DAYS 2-4) WITH MTX
     Route: 065
  14. RITUXIMAB [Suspect]
     Active Substance: RITUXIMAB
     Indication: Central nervous system lymphoma
     Dosage: 375 MG/M2 (CYCLE 1-3; 1 CYCLE = 2 WEEKS; DAY 0)
     Route: 042
  15. SULFAMETHOXAZOLE\TRIMETHOPRIM [Suspect]
     Active Substance: SULFAMETHOXAZOLE\TRIMETHOPRIM
     Indication: Product used for unknown indication
     Dosage: UNK UNK, CYCLIC (UNK, AT EACH CYCLE)
     Route: 065

REACTIONS (1)
  - Neutropenia [Unknown]
